FAERS Safety Report 19201496 (Version 6)
Quarter: 2022Q1

REPORT INFORMATION
  Report Type: Spontaneous
  Country: US (occurrence: US)
  Receive Date: 20210430
  Receipt Date: 20220203
  Transmission Date: 20220423
  Serious: Yes (Other)
  Sender: FDA-Public Use
  Company Number: US-PFIZER INC-2021441960

PATIENT
  Age: 16 Year
  Sex: Female

DRUGS (6)
  1. DILANTIN [Suspect]
     Active Substance: PHENYTOIN
     Indication: Seizure
     Dosage: 100 MG, FOUR TIMES A DAY
  2. DILANTIN [Suspect]
     Active Substance: PHENYTOIN
     Indication: Epilepsy
     Dosage: 50 MG
  3. VALIUM [Concomitant]
     Active Substance: DIAZEPAM
     Indication: Generalised tonic-clonic seizure
     Dosage: 2 MG, 4X/DAY (EVERY 6 HOURS)
  4. VALIUM [Concomitant]
     Active Substance: DIAZEPAM
     Dosage: 1 MG, 2X/DAY (8PM AND 8AM DAILY)
  5. KEPPRA [Concomitant]
     Active Substance: LEVETIRACETAM
     Indication: Seizure
     Dosage: UNK
     Dates: start: 2019
  6. KLONOPIN [Concomitant]
     Active Substance: CLONAZEPAM
     Indication: Seizure
     Dosage: UNK
     Dates: start: 2019

REACTIONS (7)
  - COVID-19 [Unknown]
  - Therapeutic product effect incomplete [Recovered/Resolved]
  - Product prescribing error [Unknown]
  - Off label use [Unknown]
  - Product dispensing error [Unknown]
  - Fear [Unknown]
  - Irritability [Unknown]

NARRATIVE: CASE EVENT DATE: 20201201
